FAERS Safety Report 14694591 (Version 1)
Quarter: 2018Q1

REPORT INFORMATION
  Report Type: Report from Study
  Country: BR (occurrence: BR)
  Receive Date: 20180329
  Receipt Date: 20180329
  Transmission Date: 20180509
  Serious: Yes (Other)
  Sender: FDA-Public Use
  Company Number: BR-JNJFOC-20180335235

PATIENT
  Age: 68 Year
  Sex: Male

DRUGS (1)
  1. SIMPONI [Suspect]
     Active Substance: GOLIMUMAB
     Indication: RHEUMATOID ARTHRITIS
     Route: 058
     Dates: start: 20140110

REACTIONS (4)
  - Road traffic accident [Unknown]
  - Acetabulum fracture [Unknown]
  - Muscle necrosis [Unknown]
  - Infection [Unknown]

NARRATIVE: CASE EVENT DATE: 20171212
